FAERS Safety Report 17624319 (Version 1)
Quarter: 2020Q2

REPORT INFORMATION
  Report Type: Spontaneous
  Country: DK (occurrence: DK)
  Receive Date: 20200403
  Receipt Date: 20200403
  Transmission Date: 20200713
  Serious: Yes (Other)
  Sender: FDA-Public Use
  Company Number: DK-BAYER-2020-051871

PATIENT
  Age: 24 Year
  Sex: Female
  Weight: 53 kg

DRUGS (2)
  1. ISOTRETINOIN ORION [Concomitant]
     Active Substance: ISOTRETINOIN
     Indication: ACNE
     Dosage: 30 MG, QD
     Route: 048
     Dates: start: 201812, end: 201905
  2. JAYDESS [Suspect]
     Active Substance: LEVONORGESTREL
     Indication: CONTRACEPTION
     Dosage: 14  ?G PER DAY CONTINUOUSLY
     Route: 015
     Dates: start: 20181112, end: 20190708

REACTIONS (5)
  - Ovarian cyst [Not Recovered/Not Resolved]
  - Syncope [Recovered/Resolved]
  - Abdominal pain lower [Recovered/Resolved]
  - Menstrual disorder [Recovered/Resolved]
  - Ovarian cyst ruptured [Recovered/Resolved]

NARRATIVE: CASE EVENT DATE: 20181112
